FAERS Safety Report 9952352 (Version 1)
Quarter: 2014Q1

REPORT INFORMATION
  Report Type: Report from Study
  Country: US (occurrence: US)
  Receive Date: 20140304
  Receipt Date: 20140304
  Transmission Date: 20141002
  Serious: No
  Sender: FDA-Public Use
  Company Number: US-ABBVIE-13P-163-1079618-00

PATIENT
  Age: 56 Year
  Sex: Female
  Weight: 76.27 kg

DRUGS (6)
  1. HUMIRA [Suspect]
     Indication: PSORIATIC ARTHROPATHY
     Dates: end: 201304
  2. HUMIRA [Suspect]
     Dates: start: 201304
  3. NOVOLOG [Concomitant]
     Indication: TYPE 1 DIABETES MELLITUS
  4. LEVEMIR [Concomitant]
     Indication: TYPE 1 DIABETES MELLITUS
  5. LISINOPRIL [Concomitant]
     Indication: BLOOD PRESSURE
  6. ATENOLOL [Concomitant]
     Indication: PRODUCT USED FOR UNKNOWN INDICATION

REACTIONS (11)
  - Injection site bruising [Recovered/Resolved]
  - Psoriasis [Not Recovered/Not Resolved]
  - Joint stiffness [Not Recovered/Not Resolved]
  - Psoriasis [Not Recovered/Not Resolved]
  - Rash [Not Recovered/Not Resolved]
  - Dizziness [Not Recovered/Not Resolved]
  - Bronchitis [Recovered/Resolved]
  - Bronchitis [Recovered/Resolved]
  - Viral infection [Recovered/Resolved]
  - Fatigue [Not Recovered/Not Resolved]
  - Hypertension [Not Recovered/Not Resolved]
